FAERS Safety Report 24909483 (Version 1)
Quarter: 2025Q1

REPORT INFORMATION
  Report Type: Other
  Country: CA (occurrence: CA)
  Receive Date: 20250131
  Receipt Date: 20250131
  Transmission Date: 20250408
  Serious: Yes (Hospitalization, Other)
  Sender: LUPIN
  Company Number: None

PATIENT
  Age: 53 Year
  Sex: Male

DRUGS (9)
  1. CEPHALEXIN [Suspect]
     Active Substance: CEPHALEXIN
     Indication: Antibiotic therapy
     Route: 065
  2. ACYCLOVIR [Suspect]
     Active Substance: ACYCLOVIR
     Indication: Herpes simplex
     Dosage: 3 DOSAGE FORM, QD
     Route: 042
  3. CIDOFOVIR [Suspect]
     Active Substance: CIDOFOVIR
     Indication: Herpes simplex
     Route: 061
  4. FOSCARNET SODIUM [Suspect]
     Active Substance: FOSCARNET SODIUM
     Indication: Herpes simplex
     Route: 061
  5. FOSCARNET SODIUM [Suspect]
     Active Substance: FOSCARNET SODIUM
     Dosage: 2 DOSAGE FORM, QD (90 MG/KG)
     Route: 042
  6. IMIQUIMOD [Suspect]
     Active Substance: IMIQUIMOD
     Indication: Herpes simplex
     Route: 061
  7. VALACYCLOVIR HYDROCHLORIDE [Suspect]
     Active Substance: VALACYCLOVIR HYDROCHLORIDE
     Indication: Herpes simplex
     Route: 048
  8. PRITELIVIR [Suspect]
     Active Substance: PRITELIVIR
     Indication: Herpes simplex
     Route: 065
  9. PRITELIVIR [Suspect]
     Active Substance: PRITELIVIR
     Route: 065

REACTIONS (2)
  - Drug ineffective [Unknown]
  - Drug resistance [Unknown]
